FAERS Safety Report 7584833-9 (Version None)
Quarter: 2011Q2

REPORT INFORMATION
  Report Type: 
  Country: None (occurrence: None)
  Receive Date: 20110630
  Receipt Date: 20110627
  Transmission Date: 20111010
  Serious: Yes (Life-Threatening, Other)
  Sender: FDA-Public Use
  Company Number: PHHY2010DE16278

PATIENT
  Sex: Female

DRUGS (4)
  1. VITAMIN D [Concomitant]
     Indication: OSTEOPOROSIS
     Dosage: UNK
  2. CALCIUM CARBONATE [Concomitant]
     Indication: OSTEOPOROSIS
     Dosage: 1000 MG,
  3. NSAR [Concomitant]
     Indication: PROPHYLAXIS
     Dosage: 5 MG, ONCE YEARLY
     Route: 042
     Dates: start: 20100303, end: 20100304
  4. ZOLEDRONIC ACID [Suspect]
     Indication: OSTEOPOROSIS
     Dosage: 5 MG,
     Route: 042
     Dates: start: 20100303, end: 20100303

REACTIONS (3)
  - CLAVICLE FRACTURE [None]
  - FALL [None]
  - SYNCOPE [None]
